FAERS Safety Report 4936240-2 (Version None)
Quarter: 2006Q1

REPORT INFORMATION
  Report Type: 
  Country: None (occurrence: None)
  Receive Date: 20060307
  Receipt Date: 20051222
  Transmission Date: 20060701
  Serious: No
  Sender: FDA-Public Use
  Company Number: US-GLAXOSMITHKLINE-A0586837A

PATIENT
  Age: 86 Year
  Sex: Male

DRUGS (4)
  1. REQUIP [Suspect]
     Indication: RESTLESS LEGS SYNDROME
     Dosage: .25MG PER DAY
     Route: 048
     Dates: start: 20051220
  2. METOPROLOL [Concomitant]
  3. ANAPRIL [Concomitant]
  4. SYNTHROID [Concomitant]

REACTIONS (1)
  - HEADACHE [None]
